FAERS Safety Report 9061590 (Version 1)
Quarter: 2013Q1

REPORT INFORMATION
  Report Type: Spontaneous
  Country: US (occurrence: None)
  Receive Date: 20130208
  Receipt Date: 20130208
  Transmission Date: 20140127
  Serious: No
  Sender: FDA-Public Use
  Company Number: None

PATIENT
  Age: 40 Year
  Sex: Female

DRUGS (1)
  1. ELINEST [Suspect]
     Route: 048
     Dates: start: 20130125, end: 20130206

REACTIONS (1)
  - Adverse drug reaction [None]
